FAERS Safety Report 19584300 (Version 2)
Quarter: 2021Q3

REPORT INFORMATION
  Report Type: Spontaneous
  Country: PT (occurrence: PT)
  Receive Date: 20210720
  Receipt Date: 20210806
  Transmission Date: 20211014
  Serious: Yes (Hospitalization, Other)
  Sender: FDA-Public Use
  Company Number: NVSC2021PT163347

PATIENT
  Age: 33 Year
  Sex: Female

DRUGS (1)
  1. AMOXICILLIN,CLAVULANIC ACID [Suspect]
     Active Substance: AMOXICILLIN\CLAVULANIC ACID
     Indication: PRODUCT USED FOR UNKNOWN INDICATION
     Dosage: 2200 MG, Q8H
     Route: 065

REACTIONS (9)
  - Condition aggravated [Unknown]
  - Trismus [Unknown]
  - Hyperaemia [Unknown]
  - Lemierre syndrome [Recovering/Resolving]
  - Ludwig angina [Recovering/Resolving]
  - Swelling [Unknown]
  - Venous thrombosis [Unknown]
  - Toothache [Unknown]
  - Drug ineffective [Unknown]
